FAERS Safety Report 11650900 (Version 1)
Quarter: 2015Q4

REPORT INFORMATION
  Report Type: Spontaneous
  Country: CN (occurrence: CN)
  Receive Date: 20151021
  Receipt Date: 20151021
  Transmission Date: 20160304
  Serious: Yes (Other)
  Sender: FDA-Public Use
  Company Number: CN-GLAXOSMITHKLINE-CN2015GSK133222

PATIENT
  Age: 30 Year
  Sex: Female
  Weight: 53.5 kg

DRUGS (1)
  1. FLIXONASE [Suspect]
     Active Substance: FLUTICASONE PROPIONATE
     Indication: RHINITIS
     Dosage: TWO SPRAYS TO EACH NOSTRIL, QD
     Dates: start: 2011, end: 2015

REACTIONS (8)
  - Rhinitis [Recovering/Resolving]
  - Sinus headache [Recovering/Resolving]
  - Drug dependence [Not Recovered/Not Resolved]
  - Disease recurrence [Recovering/Resolving]
  - Inappropriate schedule of drug administration [Unknown]
  - Nasal congestion [Recovering/Resolving]
  - Epistaxis [Recovering/Resolving]
  - Drug ineffective [Not Recovered/Not Resolved]

NARRATIVE: CASE EVENT DATE: 201509
